FAERS Safety Report 21682051 (Version 2)
Quarter: 2023Q1

REPORT INFORMATION
  Report Type: Report from Study
  Country: US (occurrence: US)
  Receive Date: 20221205
  Receipt Date: 20230128
  Transmission Date: 20230418
  Serious: No
  Sender: FDA-Public Use
  Company Number: US-ABBVIE-4180659

PATIENT
  Age: 30 Year
  Sex: Female

DRUGS (4)
  1. HUMIRA [Suspect]
     Active Substance: ADALIMUMAB
     Indication: Hidradenitis
     Route: 058
     Dates: start: 20220504
  2. MODERNA COVID-19 VACCINE [Concomitant]
     Active Substance: ELASOMERAN
     Indication: COVID-19 immunisation
     Dosage: FIRST DOSE?FREQUENCY 1 IN ONCE
     Route: 030
     Dates: start: 20210430, end: 20210430
  3. MODERNA COVID-19 VACCINE [Concomitant]
     Active Substance: ELASOMERAN
     Indication: COVID-19 immunisation
     Dosage: SECOND DOSE?FREQUENCY 1 IN ONCE
     Route: 030
     Dates: start: 20210527, end: 20210527
  4. MODERNA COVID-19 VACCINE [Concomitant]
     Active Substance: ELASOMERAN
     Indication: COVID-19 immunisation
     Dosage: THIRD DOSE?FREQUENCY 1 IN ONCE
     Route: 030
     Dates: start: 20211219, end: 20211219

REACTIONS (2)
  - COVID-19 [Unknown]
  - Hidradenitis [Unknown]

NARRATIVE: CASE EVENT DATE: 20221009
